FAERS Safety Report 6498289-0 (Version None)
Quarter: 2009Q4

REPORT INFORMATION
  Report Type: 
  Country: None (occurrence: None)
  Receive Date: 20091215
  Receipt Date: 20091203
  Transmission Date: 20100525
  Serious: Yes (Hospitalization)
  Sender: FDA-Public Use
  Company Number: US-PFIZER INC-2008052482

PATIENT
  Sex: Male
  Weight: 115.1 kg

DRUGS (10)
  1. SUNITINIB MALATE [Suspect]
     Indication: PROSTATE CANCER
     Dosage: 25 MG, 1X/DAY
     Route: 048
     Dates: start: 20080521, end: 20080527
  2. AVAPRO [Concomitant]
     Route: 048
     Dates: start: 20050101
  3. COREG [Concomitant]
     Route: 048
     Dates: start: 20080220
  4. HYDROCODONE [Concomitant]
     Route: 048
  5. DEXAMETHASONE TAB [Concomitant]
     Indication: PROPHYLAXIS
     Dosage: PRIOR TO CHEMO
     Route: 048
     Dates: start: 20080117
  6. NEXIUM [Concomitant]
     Route: 048
  7. WARFARIN SODIUM [Concomitant]
     Route: 048
     Dates: start: 20080502, end: 20080528
  8. ZOFRAN [Concomitant]
     Route: 048
     Dates: start: 20080301
  9. ZOLADEX [Concomitant]
     Route: 058
     Dates: start: 20020101
  10. ZOMETA [Concomitant]
     Route: 042

REACTIONS (1)
  - PERIRECTAL ABSCESS [None]
